FAERS Safety Report 13264211 (Version 1)
Quarter: 2017Q1

REPORT INFORMATION
  Report Type: Spontaneous
  Country: US (occurrence: US)
  Receive Date: 20170222
  Receipt Date: 20170222
  Transmission Date: 20170428
  Serious: Yes (Hospitalization)
  Sender: FDA-Public Use
  Company Number: None

PATIENT
  Age: 31 Year
  Sex: Male
  Weight: 76.4 kg

DRUGS (1)
  1. ACETAMINOPHEN AND DIPHENHYDRAMINE HYDROCHLORIDE [Suspect]
     Active Substance: ACETAMINOPHEN\DIPHENHYDRAMINE HYDROCHLORIDE
     Indication: INSOMNIA
     Dosage: 500/25 MG
     Route: 048
     Dates: start: 20161129, end: 20161129

REACTIONS (6)
  - Nausea [None]
  - Intentional product use issue [None]
  - Alcohol use [None]
  - Hepatic enzyme increased [None]
  - Vomiting [None]
  - Toxicity to various agents [None]

NARRATIVE: CASE EVENT DATE: 20161129
